FAERS Safety Report 22604015 (Version 2)
Quarter: 2023Q4

REPORT INFORMATION
  Report Type: Spontaneous
  Country: US (occurrence: None)
  Receive Date: 20230615
  Receipt Date: 20231011
  Transmission Date: 20240109
  Serious: Yes (Other)
  Sender: FDA-Public Use
  Company Number: US-ROCHE-3366365

PATIENT
  Age: 74 Year
  Sex: Male
  Weight: 127.12 kg

DRUGS (8)
  1. VABYSMO [Suspect]
     Active Substance: FARICIMAB-SVOA
     Indication: Neovascular age-related macular degeneration
     Dosage: EVERY 5-6 WEEKS
     Route: 065
     Dates: start: 20220616, end: 20230414
  2. VABYSMO [Suspect]
     Active Substance: FARICIMAB-SVOA
     Indication: Choroidal neovascularisation
  3. AVASTIN [Suspect]
     Active Substance: BEVACIZUMAB
     Indication: Neovascular age-related macular degeneration
     Dosage: Q4-5 WEEK?ON 14/JUL/2021 RECEIVED LAST DOSE.
     Route: 050
     Dates: start: 20210510
  4. AVASTIN [Suspect]
     Active Substance: BEVACIZUMAB
     Indication: Choroidal neovascularisation
  5. LUCENTIS [Concomitant]
     Active Substance: RANIBIZUMAB
     Indication: Neovascular age-related macular degeneration
     Dosage: Q4-6 WEEK
     Route: 050
     Dates: start: 20220322
  6. LUCENTIS [Concomitant]
     Active Substance: RANIBIZUMAB
     Indication: Choroidal neovascularisation
     Dosage: Q4-6 WEEK
     Route: 050
     Dates: start: 20220427
  7. EYLEA [Concomitant]
     Active Substance: AFLIBERCEPT
     Indication: Neovascular age-related macular degeneration
     Dosage: Q4-5 WEEK
     Route: 050
     Dates: start: 20110811
  8. EYLEA [Concomitant]
     Active Substance: AFLIBERCEPT
     Indication: Choroidal neovascularisation
     Dosage: Q4-5 WEEK
     Route: 050
     Dates: start: 20220208

REACTIONS (4)
  - Inflammation [Recovered/Resolved]
  - Off label use [Unknown]
  - Vitritis [Recovering/Resolving]
  - Iridocyclitis [Recovering/Resolving]

NARRATIVE: CASE EVENT DATE: 20230414
